FAERS Safety Report 6994261-2 (Version None)
Quarter: 2010Q3

REPORT INFORMATION
  Report Type: 
  Country: None (occurrence: None)
  Receive Date: 20100917
  Receipt Date: 20070524
  Transmission Date: 20110219
  Serious: Yes (Hospitalization, Other)
  Sender: FDA-Public Use
  Company Number: US-ASTRAZENECA-2007UW04110

PATIENT
  Age: 185 Month
  Sex: Female
  Weight: 51.3 kg

DRUGS (15)
  1. SEROQUEL [Suspect]
     Indication: BIPOLAR DISORDER
     Dosage: 25 MG-150 MG
     Route: 048
     Dates: start: 20040310
  2. SEROQUEL [Suspect]
     Indication: DEPRESSION
     Dosage: 25 MG-150 MG
     Route: 048
     Dates: start: 20040310
  3. SEROQUEL [Suspect]
     Indication: AFFECTIVE DISORDER
     Dosage: 25 MG-150 MG
     Route: 048
     Dates: start: 20040310
  4. SEROQUEL [Suspect]
     Route: 048
     Dates: start: 20040401, end: 20040701
  5. SEROQUEL [Suspect]
     Route: 048
     Dates: start: 20040401, end: 20040701
  6. SEROQUEL [Suspect]
     Route: 048
     Dates: start: 20040401, end: 20040701
  7. ABILIFY [Suspect]
     Dates: start: 20040517
  8. ABILIFY [Suspect]
     Dosage: 10 MG-15 MG
     Dates: start: 20040517
  9. ZYPREXA [Suspect]
     Dates: start: 20040109
  10. TRILEPTAL [Concomitant]
     Indication: IRRITABILITY
     Dosage: 150 MG-1200 MG
     Route: 048
     Dates: start: 20010131
  11. LEXAPRO [Concomitant]
     Dates: start: 20040603
  12. PAXIL [Concomitant]
     Indication: DEPRESSION
     Dosage: 30 MG-40 MG
     Dates: start: 20040310
  13. PROZAC [Concomitant]
     Dates: start: 20040427
  14. LITHIUM CARBONATE [Concomitant]
     Dates: start: 20040310
  15. DEPAKOTE [Concomitant]
     Dates: start: 20040310

REACTIONS (6)
  - DIABETES MELLITUS [None]
  - DIABETES MELLITUS INADEQUATE CONTROL [None]
  - DIABETIC COMA [None]
  - DIABETIC KETOACIDOSIS [None]
  - HYPOGLYCAEMIA [None]
  - TYPE 1 DIABETES MELLITUS [None]
